FAERS Safety Report 8548439 (Version 26)
Quarter: 2015Q2

REPORT INFORMATION
  Report Type: Spontaneous
  Country: PL (occurrence: PL)
  Receive Date: 20120507
  Receipt Date: 20150412
  Transmission Date: 20150821
  Serious: Yes (Other)
  Sender: FDA-Public Use
  Company Number: PHHY2012PL036332

PATIENT
  Age: 43 Year
  Sex: Male

DRUGS (5)
  1. VITAMIN C [Concomitant]
     Active Substance: ASCORBIC ACID
     Indication: PRODUCT USED FOR UNKNOWN INDICATION
     Route: 065
  2. LINSEED [Concomitant]
     Indication: PRODUCT USED FOR UNKNOWN INDICATION
     Route: 065
  3. GILENYA [Suspect]
     Active Substance: FINGOLIMOD HYDROCHLORIDE
     Indication: MULTIPLE SCLEROSIS
     Route: 048
     Dates: start: 20110603
  4. ASPIRIN. [Concomitant]
     Active Substance: ASPIRIN
     Indication: PRODUCT USED FOR UNKNOWN INDICATION
     Route: 065
  5. ANTITHROMBOTIC AGENTS [Concomitant]
     Active Substance: UNSPECIFIED INGREDIENT
     Indication: PRODUCT USED FOR UNKNOWN INDICATION
     Route: 065

REACTIONS (25)
  - Metastases to central nervous system [Unknown]
  - Torticollis [Unknown]
  - Neck pain [Unknown]
  - Headache [Not Recovered/Not Resolved]
  - Feeling abnormal [Recovered/Resolved]
  - Somnolence [Unknown]
  - Abdominal discomfort [Unknown]
  - Speech disorder [Unknown]
  - Spinal cord oedema [Recovering/Resolving]
  - Nerve injury [Unknown]
  - Disorientation [Unknown]
  - Loss of consciousness [Unknown]
  - Pain [Unknown]
  - Intervertebral disc disorder [Unknown]
  - Gait disturbance [Recovering/Resolving]
  - Muscle spasms [Unknown]
  - Cerebrospinal fluid leakage [Unknown]
  - Fall [Unknown]
  - Contusion [Unknown]
  - Myalgia [Unknown]
  - Asthenia [Unknown]
  - Limb injury [Unknown]
  - Spinal cord neoplasm [Not Recovered/Not Resolved]
  - Spinal cord compression [Recovering/Resolving]
  - Vertigo [Unknown]

NARRATIVE: CASE EVENT DATE: 20110604
